FAERS Safety Report 5162060-2 (Version None)
Quarter: 2006Q4

REPORT INFORMATION
  Report Type: 
  Country: None (occurrence: None)
  Receive Date: 20061121
  Receipt Date: 20061107
  Transmission Date: 20070319
  Serious: Yes (Other)
  Sender: FDA-Public Use
  Company Number: DE-2006-034875

PATIENT
  Age: 79 Year
  Sex: Female

DRUGS (1)
  1. MAGNEVIST [Suspect]
     Indication: NUCLEAR MAGNETIC RESONANCE IMAGING
     Dosage: 14 ML, 1 DOSE, UNK
     Dates: start: 20061103, end: 20061103

REACTIONS (2)
  - GENERAL PHYSICAL HEALTH DETERIORATION [None]
  - SEPSIS [None]
